FAERS Safety Report 9057423 (Version 1)
Quarter: 2013Q1

REPORT INFORMATION
  Report Type: Spontaneous
  Country: CO (occurrence: CO)
  Receive Date: 20130204
  Receipt Date: 20130204
  Transmission Date: 20140127
  Serious: Yes (Hospitalization)
  Sender: FDA-Public Use
  Company Number: CO-JNJFOC-20130116911

PATIENT
  Age: 4 Year
  Sex: Female

DRUGS (1)
  1. TRAMAL [Suspect]
     Indication: INFECTION PARASITIC
     Route: 065
     Dates: start: 20130119

REACTIONS (2)
  - Wrong drug administered [Recovered/Resolved]
  - General physical health deterioration [Recovered/Resolved]
